FAERS Safety Report 7965454-2 (Version None)
Quarter: 2011Q4

REPORT INFORMATION
  Report Type: 
  Country: None (occurrence: None)
  Receive Date: 20111208
  Receipt Date: 20111129
  Transmission Date: 20120403
  Serious: Yes (Hospitalization)
  Sender: FDA-Public Use
  Company Number: US-ASTRAZENECA-2011SE72137

PATIENT
  Age: 66 Year
  Sex: Male

DRUGS (13)
  1. COUMADIN [Concomitant]
  2. MULTI-VITAMIN [Concomitant]
  3. CASODEX [Suspect]
     Indication: PROSTATE CANCER
     Route: 048
     Dates: start: 20111119
  4. TAXOTERE [Suspect]
     Indication: PROSTATE CANCER
     Route: 042
     Dates: start: 20111121
  5. COMPAZINE [Concomitant]
  6. CRESTOR [Concomitant]
  7. FLONASE [Concomitant]
  8. FLUTICASONE PROP/SALMETEROL [Concomitant]
  9. LORAZEPAM [Concomitant]
  10. ALLOPURINOL [Concomitant]
  11. DECADRON [Concomitant]
  12. LUPRON [Suspect]
     Indication: PROSTATE CANCER
     Route: 030
     Dates: start: 20111121
  13. ATENOLOL [Concomitant]

REACTIONS (2)
  - DYSPNOEA [None]
  - BRONCHOSPASM [None]
